FAERS Safety Report 5889690-4 (Version None)
Quarter: 2008Q3

REPORT INFORMATION
  Report Type: 
  Country: None (occurrence: None)
  Receive Date: 20080919
  Receipt Date: 20080909
  Transmission Date: 20090109
  Serious: Yes (Death)
  Sender: FDA-Public Use
  Company Number: JP-ABBOTT-08P-087-0476969-00

PATIENT
  Age: 82 Year
  Sex: Male

DRUGS (16)
  1. LEUPROLIDE ACETATE [Suspect]
     Indication: PROSTATE CANCER STAGE IV
     Route: 058
     Dates: start: 20071029, end: 20071029
  2. LEUPROLIDE ACETATE [Suspect]
     Route: 050
     Dates: start: 20070806, end: 20070806
  3. LEUPROLIDE ACETATE [Suspect]
     Route: 050
     Dates: start: 20070514, end: 20070514
  4. LEUPROLIDE ACETATE [Suspect]
     Route: 050
     Dates: start: 20070223, end: 20070223
  5. LEUPROLIDE ACETATE [Suspect]
     Route: 050
     Dates: start: 20061201, end: 20061201
  6. LEUPROLIDE ACETATE [Suspect]
     Route: 050
     Dates: start: 20060908, end: 20060908
  7. LEUPROLIDE ACETATE [Suspect]
     Route: 050
     Dates: start: 20060811, end: 20060811
  8. LEUPROLIDE ACETATE [Suspect]
     Route: 050
     Dates: start: 20060328, end: 20060328
  9. BICALUTAMIDE [Concomitant]
     Indication: PROSTATE CANCER STAGE IV
     Route: 048
     Dates: end: 20061005
  10. LEVOFLOXACIN [Concomitant]
     Indication: CYSTITIS
     Route: 048
     Dates: start: 20061006, end: 20061208
  11. FLUTAMIDE [Concomitant]
     Indication: PROSTATE CANCER STAGE IV
     Route: 048
     Dates: start: 20070223, end: 20070419
  12. FOSFESTROL TETRASODIUM [Concomitant]
     Indication: PROSTATE CANCER STAGE IV
     Route: 048
     Dates: start: 20070424, end: 20071213
  13. ACETYL SALICYLIC ACID COMPOUND TAB [Concomitant]
     Indication: THROMBOSIS PROPHYLAXIS
     Route: 048
     Dates: start: 20070724, end: 20071213
  14. MELOXICAM [Concomitant]
     Indication: CANCER PAIN
     Route: 048
     Dates: start: 20070424, end: 20070513
  15. LOXOPROFEN SODIUM [Concomitant]
     Indication: CANCER PAIN
     Route: 048
     Dates: start: 20070514, end: 20071213
  16. MISOPROSTOL [Concomitant]
     Indication: PROPHYLAXIS
     Route: 048
     Dates: start: 20070514, end: 20071213

REACTIONS (3)
  - HEPATIC FUNCTION ABNORMAL [None]
  - OEDEMA [None]
  - PROSTATE CANCER [None]
